FAERS Safety Report 4292781-5 (Version None)
Quarter: 2004Q1

REPORT INFORMATION
  Report Type: 
  Country: None (occurrence: None)
  Receive Date: 20040210
  Receipt Date: 20040127
  Transmission Date: 20041129
  Serious: Yes (Hospitalization)
  Sender: FDA-Public Use
  Company Number: RENA-10618

PATIENT
  Age: 38 Year
  Sex: Male

DRUGS (5)
  1. PHOSBLOCK - 250 MG TABLET [Suspect]
     Indication: HYPERPHOSPHATAEMIA
     Dosage: 2 G QD PO
     Route: 048
     Dates: start: 20030903, end: 20030909
  2. PHOSBLOCK - 250 MG TABLET [Suspect]
     Indication: HYPERPHOSPHATAEMIA
     Dosage: 3 G QD PO
     Route: 048
     Dates: start: 20030815, end: 20030902
  3. CALCIUM CARBONATE [Concomitant]
  4. NIFEDIPINE [Concomitant]
  5. SENNOSIDE [Concomitant]

REACTIONS (3)
  - COLITIS [None]
  - CONSTIPATION [None]
  - DIVERTICULUM [None]
